FAERS Safety Report 18663271 (Version 1)
Quarter: 2020Q4

REPORT INFORMATION
  Report Type: Report from Study
  Country: US (occurrence: US)
  Receive Date: 20201224
  Receipt Date: 20201224
  Transmission Date: 20210114
  Serious: Yes (Hospitalization, Other)
  Sender: FDA-Public Use
  Company Number: US-TAKEDA-2020TUS000762

PATIENT
  Sex: Male

DRUGS (12)
  1. MARINOL                            /00003301/ [Concomitant]
     Active Substance: ALLOPURINOL
     Dosage: UNK
     Route: 065
  2. PONATINIB [Suspect]
     Active Substance: PONATINIB
     Indication: ACUTE LYMPHOCYTIC LEUKAEMIA
     Dosage: 45 MILLIGRAM, QD
     Route: 048
     Dates: start: 201911
  3. ONDANSETRON HCL [Concomitant]
     Active Substance: ONDANSETRON HYDROCHLORIDE
     Dosage: UNK
     Route: 065
  4. OXYCODONE HYDROCHLORIDE. [Concomitant]
     Active Substance: OXYCODONE HYDROCHLORIDE
     Dosage: UNK
     Route: 065
  5. LORAZEPAM. [Concomitant]
     Active Substance: LORAZEPAM
     Dosage: UNK
     Route: 065
  6. OLANZAPINE. [Concomitant]
     Active Substance: OLANZAPINE
     Dosage: UNK
     Route: 065
  7. PONATINIB [Suspect]
     Active Substance: PONATINIB
     Dosage: 30 MILLIGRAM, QD
     Route: 048
  8. MORPHINE SULFATE. [Concomitant]
     Active Substance: MORPHINE SULFATE
     Dosage: UNK
     Route: 065
  9. LACTULOSE. [Concomitant]
     Active Substance: LACTULOSE
     Dosage: UNK
     Route: 065
  10. PONATINIB [Suspect]
     Active Substance: PONATINIB
     Indication: CHRONIC MYELOID LEUKAEMIA
     Dosage: 15 MILLIGRAM, QD
     Route: 048
  11. ACYCLOVIR                          /00587301/ [Concomitant]
     Active Substance: ACYCLOVIR
     Dosage: UNK
     Route: 065
  12. SENNA                              /00142201/ [Concomitant]
     Active Substance: SENNA LEAF
     Dosage: UNK
     Route: 065

REACTIONS (10)
  - Blast cell crisis [Unknown]
  - Rash pruritic [Not Recovered/Not Resolved]
  - Influenza like illness [Unknown]
  - Insomnia [Not Recovered/Not Resolved]
  - Product dose omission issue [Unknown]
  - Product use complaint [Unknown]
  - Bone pain [Not Recovered/Not Resolved]
  - Constipation [Not Recovered/Not Resolved]
  - Illness [Unknown]
  - Rash [Unknown]
